FAERS Safety Report 6131812-4 (Version None)
Quarter: 2009Q1

REPORT INFORMATION
  Report Type: 
  Country: None (occurrence: None)
  Receive Date: 20090323
  Receipt Date: 20090312
  Transmission Date: 20090719
  Serious: Yes (Other)
  Sender: FDA-Public Use
  Company Number: ENT 2009-0044

PATIENT
  Age: 75 Year
  Sex: Male

DRUGS (4)
  1. ENTACAPONE [Suspect]
     Indication: PARKINSONISM
     Dosage: 1000 MG ORAL
     Route: 048
     Dates: start: 20080201
  2. AMANTADINE HCL [Concomitant]
  3. LEVODOPA/CARBIDOPA RETADIERT [Concomitant]
  4. LEVODOPA/CARBIDOPA UNRETADIERT [Concomitant]

REACTIONS (6)
  - ALANINE AMINOTRANSFERASE INCREASED [None]
  - ASPARTATE AMINOTRANSFERASE INCREASED [None]
  - BLOOD ALKALINE PHOSPHATASE INCREASED [None]
  - CHOLESTASIS [None]
  - GAMMA-GLUTAMYLTRANSFERASE INCREASED [None]
  - JAUNDICE [None]
